FAERS Safety Report 20952042 (Version 2)
Quarter: 2022Q2

REPORT INFORMATION
  Report Type: Spontaneous
  Country: US (occurrence: US)
  Receive Date: 20220613
  Receipt Date: 20220622
  Transmission Date: 20220720
  Serious: No
  Sender: FDA-Public Use
  Company Number: US-PFIZER INC-202200825216

PATIENT
  Age: 69 Year
  Sex: Male

DRUGS (2)
  1. INLYTA [Suspect]
     Active Substance: AXITINIB
     Dosage: UNK, 2X/DAY
     Route: 048
  2. INLYTA [Suspect]
     Active Substance: AXITINIB
     Dosage: 1 MG (3 TABS BY MOUTH ONCE DAILY AT NIGHT TIME)
     Route: 048

REACTIONS (5)
  - Dizziness [Recovered/Resolved]
  - Pain in extremity [Unknown]
  - Eczema [Unknown]
  - Dry mouth [Unknown]
  - Product dose omission issue [Unknown]
